FAERS Safety Report 6666104-8 (Version None)
Quarter: 2010Q2

REPORT INFORMATION
  Report Type: 
  Country: None (occurrence: None)
  Receive Date: 20100402
  Receipt Date: 20100325
  Transmission Date: 20101027
  Serious: Yes (Other)
  Sender: FDA-Public Use
  Company Number: US-PFIZER INC-2010039103

PATIENT
  Age: 93 Year
  Sex: Male

DRUGS (1)
  1. LIPITOR [Suspect]
     Dosage: UNK

REACTIONS (9)
  - ARTHRALGIA [None]
  - DIARRHOEA [None]
  - DRUG HYPERSENSITIVITY [None]
  - EATING DISORDER SYMPTOM [None]
  - JOINT LOCK [None]
  - MUSCULAR WEAKNESS [None]
  - MYALGIA [None]
  - PAIN IN EXTREMITY [None]
  - PROSTATIC DISORDER [None]
